FAERS Safety Report 15037516 (Version 1)
Quarter: 2018Q2

REPORT INFORMATION
  Report Type: Spontaneous
  Country: CA (occurrence: CA)
  Receive Date: 20180620
  Receipt Date: 20180620
  Transmission Date: 20180711
  Serious: Yes (Hospitalization)
  Sender: FDA-Public Use
  Company Number: CA-ROCHE-2141836

PATIENT
  Age: 9 Year
  Sex: Male

DRUGS (5)
  1. TOCILIZUMAB. [Suspect]
     Active Substance: TOCILIZUMAB
     Indication: STILL^S DISEASE
     Route: 065
  2. TOCILIZUMAB. [Suspect]
     Active Substance: TOCILIZUMAB
     Route: 065
  3. APO-PREDNISONE [Suspect]
     Active Substance: PREDNISONE
     Dosage: 5 MG TABLET
     Route: 048
  4. APO-PREDNISONE [Suspect]
     Active Substance: PREDNISONE
     Dosage: 5 MG TABLET
     Route: 048
  5. APO-PREDNISONE [Suspect]
     Active Substance: PREDNISONE
     Indication: STILL^S DISEASE
     Dosage: 5 MG TABLET
     Route: 048

REACTIONS (4)
  - Papilloedema [Recovered/Resolved]
  - Blindness [Recovered/Resolved]
  - Intracranial pressure increased [Recovered/Resolved]
  - Steroid withdrawal syndrome [Recovered/Resolved]
